FAERS Safety Report 9472859 (Version 1)
Quarter: 2013Q3

REPORT INFORMATION
  Report Type: Spontaneous
  Country: GB (occurrence: GB)
  Receive Date: 20130823
  Receipt Date: 20130823
  Transmission Date: 20140515
  Serious: Yes (Hospitalization, Other)
  Sender: FDA-Public Use
  Company Number: GB-JNJFOC-20130811376

PATIENT
  Age: 69 Year
  Sex: Male
  Weight: 90 kg

DRUGS (18)
  1. XARELTO [Suspect]
     Indication: EMBOLISM VENOUS
     Route: 048
     Dates: end: 20130729
  2. XARELTO [Suspect]
     Indication: EMBOLISM VENOUS
     Route: 048
     Dates: start: 20130531
  3. XARELTO [Suspect]
     Indication: PULMONARY EMBOLISM
     Route: 048
     Dates: end: 20130729
  4. XARELTO [Suspect]
     Indication: PULMONARY EMBOLISM
     Route: 048
     Dates: start: 20130531
  5. DIGOXIN [Concomitant]
     Route: 065
  6. FERROUS SULPHATE [Concomitant]
     Route: 065
  7. FUROSEMIDE [Concomitant]
     Route: 065
  8. LANSOPRAZOLE [Concomitant]
     Route: 065
  9. LANTUS [Concomitant]
     Route: 065
  10. MEBEVERINE [Concomitant]
     Route: 065
  11. METFORMIN [Concomitant]
     Route: 065
  12. NOVORAPID [Concomitant]
     Route: 065
  13. RAMIPRIL [Concomitant]
     Route: 065
  14. SERETIDE [Concomitant]
     Route: 065
  15. TAMSULOSIN [Concomitant]
     Route: 065
  16. TIOTROPIUM [Concomitant]
     Route: 065
  17. VITAMIN B COMPLEX [Concomitant]
     Route: 065
  18. CHLORPHENAMINE [Concomitant]
     Route: 065

REACTIONS (3)
  - Local swelling [Unknown]
  - Drug dose omission [Unknown]
  - Deep vein thrombosis [Unknown]
